FAERS Safety Report 7522837-2 (Version None)
Quarter: 2011Q2

REPORT INFORMATION
  Report Type: 
  Country: None (occurrence: None)
  Receive Date: 20110603
  Receipt Date: 20110526
  Transmission Date: 20111010
  Serious: Yes (Hospitalization, Other)
  Sender: FDA-Public Use
  Company Number: PHHY2011NL45662

PATIENT
  Age: 18 Month
  Sex: Female

DRUGS (4)
  1. PREDNISONE [Suspect]
     Dosage: 2.5 MG, BID
  2. PREDNISONE [Suspect]
     Dosage: 1 MG, QD
  3. PROPRANOLOL [Suspect]
     Dosage: 2/ MG / KG, BID
  4. PREDNISONE [Suspect]
     Indication: HAEMANGIOMA
     Dosage: 4 MG ?KG?DAY

REACTIONS (5)
  - AGITATION [None]
  - HYPOGLYCAEMIA [None]
  - CUSHINGOID [None]
  - BACK PAIN [None]
  - HYPERTENSION [None]
